FAERS Safety Report 18198249 (Version 1)
Quarter: 2020Q3

REPORT INFORMATION
  Report Type: Spontaneous
  Country: US (occurrence: US)
  Receive Date: 20200826
  Receipt Date: 20200826
  Transmission Date: 20201103
  Serious: Yes (Death, Other)
  Sender: FDA-Public Use
  Company Number: US-AMGEN-USASP2020134573

PATIENT

DRUGS (9)
  1. XGEVA [Suspect]
     Active Substance: DENOSUMAB
     Indication: METASTATIC NEOPLASM
  2. ABIRATERONE. [Concomitant]
     Active Substance: ABIRATERONE ACETATE
     Indication: HORMONE-REFRACTORY PROSTATE CANCER
  3. PREDNISONE. [Concomitant]
     Active Substance: PREDNISONE
     Indication: HORMONE-REFRACTORY PROSTATE CANCER
  4. CARBOPLATIN. [Concomitant]
     Active Substance: CARBOPLATIN
     Indication: HORMONE-REFRACTORY PROSTATE CANCER
  5. ENZALUTAMIDE [Concomitant]
     Active Substance: ENZALUTAMIDE
     Indication: HORMONE-REFRACTORY PROSTATE CANCER
  6. DOCETAXEL. [Concomitant]
     Active Substance: DOCETAXEL
     Indication: HORMONE-REFRACTORY PROSTATE CANCER
  7. XGEVA [Suspect]
     Active Substance: DENOSUMAB
     Indication: HORMONE-REFRACTORY PROSTATE CANCER
     Dosage: UNK
     Route: 065
  8. CABAZITAXEL [Concomitant]
     Active Substance: CABAZITAXEL
     Indication: HORMONE-REFRACTORY PROSTATE CANCER
  9. SIPULEUCEL?T [Concomitant]
     Active Substance: SIPULEUCEL-T
     Indication: HORMONE-REFRACTORY PROSTATE CANCER

REACTIONS (1)
  - Death [Fatal]
